FAERS Safety Report 5287290-0 (Version None)
Quarter: 2007Q2

REPORT INFORMATION
  Report Type: 
  Country: None (occurrence: None)
  Receive Date: 20070404
  Receipt Date: 20070328
  Transmission Date: 20071010
  Serious: Yes (Other)
  Sender: FDA-Public Use
  Company Number: CN-PFIZER INC-2007024773

PATIENT
  Age: 40 Year
  Sex: Male

DRUGS (1)
  1. ZOLOFT [Suspect]
     Indication: ANXIETY
     Route: 048
     Dates: start: 20061201, end: 20070201

REACTIONS (3)
  - FATIGUE [None]
  - LETHARGY [None]
  - MARASMUS [None]
